FAERS Safety Report 20838963 (Version 1)
Quarter: 2022Q2

REPORT INFORMATION
  Report Type: Spontaneous
  Country: US (occurrence: None)
  Receive Date: 20220517
  Receipt Date: 20220517
  Transmission Date: 20220721
  Serious: Yes (Hospitalization, Disabling)
  Sender: FDA-Public Use
  Company Number: None

PATIENT
  Age: 33 Year
  Weight: 88.9 kg

DRUGS (2)
  1. CANNABIDIOL\HERBALS [Suspect]
     Active Substance: CANNABIDIOL\HERBALS
  2. CANNABIDIOL\HERBALS [Suspect]
     Active Substance: CANNABIDIOL\HERBALS

REACTIONS (13)
  - Product formulation issue [None]
  - Fatigue [None]
  - Vertigo [None]
  - Bradykinesia [None]
  - Paranoia [None]
  - Hallucination [None]
  - Cognitive disorder [None]
  - Delusion [None]
  - Panic attack [None]
  - Tachycardia [None]
  - Derealisation [None]
  - Amnesia [None]
  - Fear of death [None]

NARRATIVE: CASE EVENT DATE: 20220414
